FAERS Safety Report 16568559 (Version 1)
Quarter: 2019Q3

REPORT INFORMATION
  Report Type: Spontaneous
  Country: FR (occurrence: FR)
  Receive Date: 20190712
  Receipt Date: 20190712
  Transmission Date: 20191004
  Serious: Yes (Other)
  Sender: FDA-Public Use
  Company Number: PHHY2019FR122348

PATIENT
  Age: 48 Year
  Sex: Male

DRUGS (2)
  1. GABAPENTINE [Concomitant]
     Active Substance: GABAPENTIN
     Indication: TRIGEMINAL NEURALGIA
     Dosage: 300 MG, QD
     Route: 048
     Dates: start: 201709
  2. TEGRETOL [Suspect]
     Active Substance: CARBAMAZEPINE
     Indication: TRIGEMINAL NEURALGIA
     Dosage: 1200 MG, QD
     Route: 048
     Dates: start: 201709, end: 201903

REACTIONS (2)
  - Aphthous ulcer [Recovered/Resolved]
  - Oral lichen planus [Recovered/Resolved]

NARRATIVE: CASE EVENT DATE: 201811
